FAERS Safety Report 9033240 (Version 2)
Quarter: 2013Q1

REPORT INFORMATION
  Report Type: Spontaneous
  Country: US (occurrence: US)
  Receive Date: 20130128
  Receipt Date: 20130131
  Transmission Date: 20140127
  Serious: No
  Sender: FDA-Public Use
  Company Number: US-009507513-1301USA012027

PATIENT
  Age: 25 Year
  Sex: Female
  Weight: 83.45 kg

DRUGS (2)
  1. IMPLANON [Suspect]
     Indication: CONTRACEPTION
     Dosage: UNK
     Route: 059
     Dates: start: 20130117, end: 20130117
  2. IMPLANON [Suspect]
     Dosage: 1 ROD
     Route: 059
     Dates: start: 20130117

REACTIONS (2)
  - Device difficult to use [Unknown]
  - Product quality issue [Unknown]
